FAERS Safety Report 7228994-X (Version None)
Quarter: 2011Q1

REPORT INFORMATION
  Report Type: 
  Country: None (occurrence: None)
  Receive Date: 20110117
  Receipt Date: 20110104
  Transmission Date: 20110831
  Serious: Yes (Disabling)
  Sender: FDA-Public Use
  Company Number: PHHY2010TR84136

PATIENT
  Age: 67 Year
  Sex: Female

DRUGS (1)
  1. ACLASTA [Suspect]
     Route: 042

REACTIONS (1)
  - MOVEMENT DISORDER [None]
